FAERS Safety Report 25869885 (Version 1)
Quarter: 2025Q4

REPORT INFORMATION
  Report Type: Spontaneous
  Country: US (occurrence: US)
  Receive Date: 20251001
  Receipt Date: 20251001
  Transmission Date: 20260117
  Serious: No
  Sender: RECKITT BENCKISER
  Company Number: US-INDIVIOR US-INDV-157163-2024

PATIENT
  Sex: Male

DRUGS (2)
  1. SUBOXONE [Suspect]
     Active Substance: BUPRENORPHINE HYDROCHLORIDE\NALOXONE HYDROCHLORIDE
     Indication: Drug use disorder
     Dosage: 4 MILLIGRAM, QD
     Route: 065
     Dates: start: 202002
  2. SUBOXONE [Suspect]
     Active Substance: BUPRENORPHINE HYDROCHLORIDE\NALOXONE HYDROCHLORIDE
     Indication: Pain management
     Dosage: 1 MILLIGRAM, QD (TABLET/FILM)
     Route: 065
     Dates: start: 202002

REACTIONS (4)
  - Dental caries [Unknown]
  - Tooth erosion [Unknown]
  - Wrong technique in product usage process [Unknown]
  - Inappropriate schedule of product discontinuation [Unknown]
